FAERS Safety Report 8825212 (Version 2)
Quarter: 2012Q4

REPORT INFORMATION
  Report Type: 
  Country: FR (occurrence: FR)
  Receive Date: 20121004
  Receipt Date: 20121017
  Transmission Date: 20130627
  Serious: Yes (Other)
  Sender: FDA-Public Use
  Company Number: FR-JNJFOC-20120911752

PATIENT
  Age: 47 Year
  Sex: Male

DRUGS (2)
  1. CONTRAMAL [Suspect]
     Indication: PAIN
     Route: 065
  2. LYRICA [Suspect]
     Indication: PRODUCT USED FOR UNKNOWN INDICATION
     Route: 065

REACTIONS (6)
  - Euphoric mood [Recovered/Resolved]
  - Agitation [Recovered/Resolved]
  - Tachycardia [Recovered/Resolved]
  - Drug abuse [Unknown]
  - Logorrhoea [Recovered/Resolved]
  - Mydriasis [Recovered/Resolved]
